FAERS Safety Report 7427947-6 (Version None)
Quarter: 2011Q2

REPORT INFORMATION
  Report Type: 
  Country: None (occurrence: None)
  Receive Date: 20110421
  Receipt Date: 20110413
  Transmission Date: 20111010
  Serious: Yes (Hospitalization, Other)
  Sender: FDA-Public Use
  Company Number: US-ASTELLAS-2011US000889

PATIENT
  Sex: Male
  Weight: 71 kg

DRUGS (11)
  1. AMEVIVE [Suspect]
     Indication: RENAL TRANSPLANT
     Dosage: 15 MG, WEEKLY
     Route: 058
     Dates: start: 20101007, end: 20110203
  2. PEPCID [Concomitant]
     Indication: PRODUCT USED FOR UNKNOWN INDICATION
     Dosage: 20 MG, BID
     Route: 048
  3. MYFORTIC [Concomitant]
     Dosage: 180 MG, UID/QD
     Route: 048
     Dates: start: 20110305
  4. VALCYTE [Concomitant]
     Indication: PRODUCT USED FOR UNKNOWN INDICATION
     Dosage: 450 MG, UID/QD
     Route: 048
  5. NORCO [Concomitant]
     Indication: PRODUCT USED FOR UNKNOWN INDICATION
     Dosage: 10/325 MG, PRN
     Route: 048
  6. MYCELEX [Concomitant]
     Indication: PRODUCT USED FOR UNKNOWN INDICATION
     Dosage: 10 MG, BID
     Route: 048
  7. SENNA [Concomitant]
     Indication: PRODUCT USED FOR UNKNOWN INDICATION
     Dosage: 1 DF, BID
     Route: 048
  8. AMEVIVE [Suspect]
     Dosage: 15 MG, MONTHLY
     Route: 058
  9. NEUPOGEN [Suspect]
     Indication: NEUTROPENIA
     Dosage: 480 UG, UNKNOWN/D
     Route: 058
     Dates: start: 20110228
  10. MYFORTIC [Concomitant]
     Indication: PRODUCT USED FOR UNKNOWN INDICATION
     Dosage: 900 MG, BID
     Route: 048
  11. BACTRIM DS [Concomitant]
     Indication: PRODUCT USED FOR UNKNOWN INDICATION
     Dosage: 400/80 MG, UID/QD
     Route: 048

REACTIONS (5)
  - ESCHERICHIA BACTERAEMIA [None]
  - NEUTROPENIA [None]
  - RENAL DISORDER [None]
  - FEBRILE NEUTROPENIA [None]
  - BONE PAIN [None]
